FAERS Safety Report 10039249 (Version 2)
Quarter: 2014Q1

REPORT INFORMATION
  Report Type: Report from Study
  Country: BR (occurrence: BR)
  Receive Date: 20140326
  Receipt Date: 20140326
  Transmission Date: 20141002
  Serious: Yes (Other)
  Sender: FDA-Public Use
  Company Number: PHHY2014BR020073

PATIENT
  Age: 78 Year
  Sex: Male
  Weight: 86 kg

DRUGS (5)
  1. HYDERGINE [Suspect]
     Indication: LABYRINTHITIS
     Dosage: 3 DF (1 MG CODE), DAILY
     Route: 048
  2. HYDERGINE [Suspect]
     Dosage: 3 DF (1 MG CODE), DAILY
     Route: 048
  3. LESCOL [Concomitant]
     Indication: BLOOD CHOLESTEROL ABNORMAL
     Dosage: 1 DF, DAILY
  4. COMBODART [Concomitant]
     Indication: PROSTATIC DISORDER
     Dosage: 1 DF, (0.5 MG) DAILY
     Route: 048
  5. AAS [Concomitant]
     Indication: ANTICOAGULANT THERAPY
     Dosage: 1 DF, DAILY
     Route: 048

REACTIONS (7)
  - Tongue biting [Recovered/Resolved]
  - Polyp [Recovered/Resolved]
  - Malaise [Recovered/Resolved]
  - Drug dependence [Not Recovered/Not Resolved]
  - Feeling abnormal [Recovered/Resolved]
  - Dizziness [Recovered/Resolved]
  - Nausea [Recovered/Resolved]
